FAERS Safety Report 23517836 (Version 1)
Quarter: 2024Q1

REPORT INFORMATION
  Report Type: Report from Study
  Country: US (occurrence: US)
  Receive Date: 20240213
  Receipt Date: 20240213
  Transmission Date: 20240409
  Serious: Yes (Other)
  Sender: FDA-Public Use
  Company Number: US-JNJFOC-20240204634

PATIENT
  Age: 25 Year
  Sex: Female

DRUGS (2)
  1. SPRAVATO [Suspect]
     Active Substance: ESKETAMINE
     Indication: Depression
     Dosage: 56 MG, 2 TOTAL DOSES
     Dates: start: 20240118, end: 20240123
  2. SPRAVATO [Suspect]
     Active Substance: ESKETAMINE
     Dosage: 56 MG, 1 TOTAL DOSES
     Dates: start: 20240125, end: 20240125

REACTIONS (10)
  - Hallucination [Unknown]
  - Dyskinesia [Unknown]
  - Affect lability [Unknown]
  - Autoscopy [Recovered/Resolved]
  - Aphasia [Unknown]
  - Abnormal behaviour [Unknown]
  - Hypertension [Recovering/Resolving]
  - Heart rate increased [Unknown]
  - Sedation [Recovered/Resolved]
  - Feeling abnormal [Unknown]

NARRATIVE: CASE EVENT DATE: 20240125
